FAERS Safety Report 12428951 (Version 9)
Quarter: 2019Q1

REPORT INFORMATION
  Report Type: Report from Study
  Country: US (occurrence: US)
  Receive Date: 20160602
  Receipt Date: 20190207
  Transmission Date: 20190417
  Serious: Yes (Hospitalization, Other)
  Sender: FDA-Public Use
  Company Number: US-ACTELION-A-US2016-136981

PATIENT
  Age: 81 Year
  Sex: Female

DRUGS (3)
  1. TRACLEER [Suspect]
     Active Substance: BOSENTAN
     Indication: PULMONARY ARTERIAL HYPERTENSION
     Dosage: 125 MG, BID
     Route: 048
     Dates: start: 20110110, end: 201901
  2. DILTIAZEM. [Concomitant]
     Active Substance: DILTIAZEM
  3. LASIX [Suspect]
     Active Substance: FUROSEMIDE
     Indication: FLUID RETENTION
     Route: 065

REACTIONS (18)
  - Asthenia [Unknown]
  - Pain [Unknown]
  - Oedema peripheral [Unknown]
  - Dialysis [Unknown]
  - Dizziness postural [Recovered/Resolved]
  - Fall [Unknown]
  - Heart rate decreased [Unknown]
  - Cardiac pacemaker insertion [Unknown]
  - Foot fracture [Unknown]
  - Renal failure [Unknown]
  - Respiratory failure [Unknown]
  - Pericardial effusion [Unknown]
  - Pleural effusion [Unknown]
  - Urinary tract infection [Unknown]
  - Cardiac failure [Unknown]
  - Limb injury [Unknown]
  - Cardiac operation [Unknown]
  - Road traffic accident [Unknown]

NARRATIVE: CASE EVENT DATE: 20181110
